FAERS Safety Report 20120964 (Version 1)
Quarter: 2021Q4

REPORT INFORMATION
  Report Type: Spontaneous
  Country: JP (occurrence: JP)
  Receive Date: 20211127
  Receipt Date: 20211127
  Transmission Date: 20220303
  Serious: Yes (Hospitalization)
  Sender: FDA-Public Use
  Company Number: JP-CHUGAI-2021028315

PATIENT
  Age: 69 Year
  Sex: Male
  Weight: 60.1 kg

DRUGS (2)
  1. TECENTRIQ [Suspect]
     Active Substance: ATEZOLIZUMAB
     Indication: Hepatocellular carcinoma
     Dosage: 1200 MILLIGRAM
     Route: 041
     Dates: start: 20210210, end: 20210826
  2. AVASTIN [Suspect]
     Active Substance: BEVACIZUMAB
     Indication: Hepatocellular carcinoma
     Dosage: UNK
     Route: 041
     Dates: start: 20210210, end: 20210826

REACTIONS (4)
  - Interstitial lung disease [Recovering/Resolving]
  - Malaise [Unknown]
  - Decreased appetite [Unknown]
  - Rash [Unknown]

NARRATIVE: CASE EVENT DATE: 20210601
